FAERS Safety Report 12998488 (Version 1)
Quarter: 2016Q4

REPORT INFORMATION
  Report Type: Spontaneous
  Country: US (occurrence: US)
  Receive Date: 20161202
  Receipt Date: 20161202
  Transmission Date: 20170207
  Serious: No
  Sender: FDA-Public Use
  Company Number: None

PATIENT
  Age: 64 Year
  Sex: Female

DRUGS (1)
  1. STIVARGA [Suspect]
     Active Substance: REGORAFENIB
     Dosage: DAILY FOR 21 DAYS ON, 7
     Route: 048
     Dates: start: 20161012, end: 20161201

REACTIONS (1)
  - Blister [None]

NARRATIVE: CASE EVENT DATE: 20161201
